FAERS Safety Report 5269763-X (Version None)
Quarter: 2007Q1

REPORT INFORMATION
  Report Type: 
  Country: None (occurrence: None)
  Receive Date: 20061213
  Receipt Date: 20030819
  Transmission Date: 20070707
  Serious: Yes (Other)
  Sender: FDA-Public Use
  Company Number: 2003UW10506

PATIENT
  Sex: Male

DRUGS (2)
  1. IRESSA [Suspect]
     Indication: NON-SMALL CELL LUNG CANCER
     Dosage: 250 MG PO
     Route: 048
  2. COUMADIN [Concomitant]

REACTIONS (4)
  - BLEEDING TIME PROLONGED [None]
  - BLOOD PRESSURE DECREASED [None]
  - HALLUCINATION [None]
  - LETHARGY [None]
